FAERS Safety Report 6686231-9 (Version None)
Quarter: 2010Q2

REPORT INFORMATION
  Report Type: 
  Country: None (occurrence: None)
  Receive Date: 20100415
  Receipt Date: 20100415
  Transmission Date: 20101027
  Serious: No
  Sender: FDA-Public Use
  Company Number: None

PATIENT
  Sex: Female

DRUGS (1)
  1. ADDERALL XR 10 [Suspect]
     Dosage: 10MG 24 HR CAP

REACTIONS (2)
  - ABDOMINAL DISCOMFORT [None]
  - PALPITATIONS [None]
